FAERS Safety Report 10959135 (Version 2)
Quarter: 2015Q2

REPORT INFORMATION
  Report Type: Report from Study
  Country: BR (occurrence: BR)
  Receive Date: 20150327
  Receipt Date: 20150413
  Transmission Date: 20150821
  Serious: Yes (Other)
  Sender: FDA-Public Use
  Company Number: BR-ABBVIE-15K-020-1366317-00

PATIENT
  Age: 60 Year
  Sex: Female
  Weight: 70 kg

DRUGS (3)
  1. HUMIRA [Suspect]
     Active Substance: ADALIMUMAB
     Indication: RHEUMATOID ARTHRITIS
     Route: 058
     Dates: start: 20140618
  2. METHOTREXATE [Concomitant]
     Active Substance: METHOTREXATE
     Indication: PRODUCT USED FOR UNKNOWN INDICATION
  3. ACULAR [Concomitant]
     Active Substance: KETOROLAC TROMETHAMINE
     Indication: EYE OPERATION
     Route: 061
     Dates: start: 20150207

REACTIONS (2)
  - Vision blurred [Recovered/Resolved]
  - Macular hole [Recovered/Resolved]

NARRATIVE: CASE EVENT DATE: 201501
